FAERS Safety Report 10984105 (Version 9)
Quarter: 2020Q3

REPORT INFORMATION
  Report Type: Report from Study
  Country: GB (occurrence: GB)
  Receive Date: 20150403
  Receipt Date: 20171017
  Transmission Date: 20201105
  Serious: Yes (Other)
  Sender: FDA-Public Use
  Company Number: GB-JNJFOC-20150402322

PATIENT
  Age: 69 Year
  Sex: Male
  Weight: 111.4 kg

DRUGS (14)
  1. IBRUTINIB [Suspect]
     Active Substance: IBRUTINIB
     Route: 048
  2. HUMULIN NOS [Concomitant]
     Active Substance: INSULIN HUMAN
  3. NIFEDIPINE. [Concomitant]
     Active Substance: NIFEDIPINE
  4. DICLOFENAC [Concomitant]
     Active Substance: DICLOFENAC
  5. ASPIRIN. [Concomitant]
     Active Substance: ASPIRIN
  6. RAMIPRIL. [Concomitant]
     Active Substance: RAMIPRIL
  7. ALLOPURINOL. [Concomitant]
     Active Substance: ALLOPURINOL
  8. IBRUTINIB [Suspect]
     Active Substance: IBRUTINIB
     Indication: B-CELL LYMPHOMA
     Route: 048
     Dates: start: 20141229, end: 20150323
  9. IRBESARTAN. [Concomitant]
     Active Substance: IRBESARTAN
  10. PREGABALIN. [Concomitant]
     Active Substance: PREGABALIN
  11. METFORMIN [Concomitant]
     Active Substance: METFORMIN HYDROCHLORIDE
  12. DOXAZOCIN [Concomitant]
     Active Substance: DOXAZOSIN MESYLATE
  13. MOXONIDINE [Concomitant]
     Active Substance: MOXONIDINE
  14. FUROSEMIDE. [Concomitant]
     Active Substance: FUROSEMIDE

REACTIONS (1)
  - Pneumonitis [Recovered/Resolved]

NARRATIVE: CASE EVENT DATE: 20150220
